FAERS Safety Report 6715180-2 (Version None)
Quarter: 2010Q2

REPORT INFORMATION
  Report Type: 
  Country: None (occurrence: None)
  Receive Date: 20100506
  Receipt Date: 20100506
  Transmission Date: 20101027
  Serious: Yes (Other)
  Sender: FDA-Public Use
  Company Number: None

PATIENT
  Sex: Male
  Weight: 92.9874 kg

DRUGS (1)
  1. DETROL LA [Suspect]
     Indication: POLLAKIURIA
     Dosage: 4MGM 1 DAILY P.O.
     Route: 048
     Dates: start: 20100119, end: 20100129

REACTIONS (2)
  - EXTRASYSTOLES [None]
  - SINUS BRADYCARDIA [None]
